FAERS Safety Report 14987291 (Version 15)
Quarter: 2020Q1

REPORT INFORMATION
  Report Type: Report from Study
  Country: DE (occurrence: DE)
  Receive Date: 20180608
  Receipt Date: 20200204
  Transmission Date: 20200409
  Serious: Yes (Other)
  Sender: FDA-Public Use
  Company Number: DE-BRISTOL-MYERS SQUIBB COMPANY-BMS-2018-030851

PATIENT
  Age: 74 Year
  Sex: Male

DRUGS (1)
  1. NIVOLUMAB [Suspect]
     Active Substance: NIVOLUMAB
     Indication: MALIGNANT MELANOMA
     Dosage: 240 MILLIGRAM, Q2WK
     Route: 042
     Dates: start: 20180130, end: 20180621

REACTIONS (8)
  - Fatigue [Recovered/Resolved]
  - Hyperkeratosis [Unknown]
  - Immune-mediated enterocolitis [Recovered/Resolved]
  - Dermatitis exfoliative generalised [Recovered/Resolved]
  - Abdominal pain [Recovered/Resolved]
  - Malignant neoplasm progression [Recovering/Resolving]
  - Lymphocyte count decreased [Recovering/Resolving]
  - Skin papilloma [Recovered/Resolved]

NARRATIVE: CASE EVENT DATE: 20180212
